FAERS Safety Report 17406962 (Version 2)
Quarter: 2020Q2

REPORT INFORMATION
  Report Type: Spontaneous
  Country: CA (occurrence: CA)
  Receive Date: 20200212
  Receipt Date: 20200506
  Transmission Date: 20200713
  Serious: Yes (Hospitalization, Other)
  Sender: FDA-Public Use
  Company Number: CA-ROCHE-2544643

PATIENT
  Age: 54 Year
  Sex: Female

DRUGS (7)
  1. SERTRALINE HYDROCHLORIDE. [Suspect]
     Active Substance: SERTRALINE HYDROCHLORIDE
     Indication: DEPRESSION
     Route: 065
  2. CLONAZEPAM. [Suspect]
     Active Substance: CLONAZEPAM
     Indication: SOMNAMBULISM
     Route: 065
  3. CLONAZEPAM. [Suspect]
     Active Substance: CLONAZEPAM
     Indication: AKATHISIA
     Route: 065
  4. DIAZEPAM. [Suspect]
     Active Substance: DIAZEPAM
     Indication: AKATHISIA
     Route: 065
  5. CLOZAPINE. [Concomitant]
     Active Substance: CLOZAPINE
  6. PHENYTOIN. [Suspect]
     Active Substance: PHENYTOIN
     Indication: GENERALISED TONIC-CLONIC SEIZURE
     Route: 065
  7. QUETIAPINE. [Suspect]
     Active Substance: QUETIAPINE
     Indication: SCHIZOPHRENIA
     Route: 048

REACTIONS (18)
  - Agranulocytosis [Recovered/Resolved]
  - Akathisia [Recovered/Resolved]
  - Arthralgia [Unknown]
  - Dystonia [Recovered/Resolved]
  - Trismus [Recovered/Resolved]
  - Hypotension [Recovered/Resolved]
  - Tardive dyskinesia [Recovered/Resolved]
  - Incoherent [Unknown]
  - Temporomandibular joint syndrome [Recovered/Resolved]
  - Oromandibular dystonia [Unknown]
  - Hallucination [Recovered/Resolved]
  - Paraesthesia [Recovered/Resolved]
  - Muscle spasms [Unknown]
  - Speech disorder [Recovered/Resolved]
  - Dysarthria [Unknown]
  - Somnambulism [Recovered/Resolved]
  - Pain in jaw [Unknown]
  - Pain [Recovered/Resolved]
